FAERS Safety Report 8379825-6 (Version None)
Quarter: 2012Q1

REPORT INFORMATION
  Report Type: 
  Country: None (occurrence: None)
  Receive Date: 20120323
  Receipt Date: 20110616
  Transmission Date: 20120608
  Serious: Yes (Other)
  Sender: FDA-Public Use
  Company Number: 163-21880-11041796

PATIENT
  Age: 82 Year
  Sex: Male
  Weight: 117.9352 kg

DRUGS (17)
  1. CHONDROITIN SULFATE COMPLEX (GLUCOSAMINE W/ CHONDROITIN SULFATES) (CAP [Concomitant]
  2. LISINOPRIL [Concomitant]
  3. ZOCOR [Concomitant]
  4. METOPROLOL TARTRATE (METOPROLOL TARTRATE) (TABLETS) [Concomitant]
  5. FUROSEMIDE [Concomitant]
  6. FOLGARD (HEPAGRISEVIT FORTE-N TABLET) (TABLETS) [Concomitant]
  7. DUONEB (COMBIVENT) (SOLUTION) [Concomitant]
  8. METFORMIN (METFORMIN) (TABLETS) [Concomitant]
  9. ASPIRIN [Concomitant]
  10. REVLIMID [Suspect]
     Indication: MYELODYSPLASTIC SYNDROME
     Dosage: 5 MG, 1 IN 1 D, PO
     Route: 048
     Dates: start: 20110301, end: 20110501
  11. NEXIUM [Concomitant]
  12. PRANDIN (REPAGLINIDE) (TABLETS) [Concomitant]
  13. METHOTREXATE SODIUM (METHOTREXATE SODIUM) (TABLETS) [Concomitant]
  14. ACTOS (PIOGLITAZONE) (TABLETS) [Concomitant]
  15. TYLENOL EXTRA STRENGTH (PARACETAMOL) (TABLETS) [Concomitant]
  16. SIMVASTATIN [Concomitant]
  17. GLUCOSAMINE SULFATE (GLUCOSAMINE SULFATE) (CAPSULES) [Concomitant]

REACTIONS (2)
  - HAEMOGLOBIN DECREASED [None]
  - FULL BLOOD COUNT DECREASED [None]
